FAERS Safety Report 4882684-7 (Version None)
Quarter: 2005Q4

REPORT INFORMATION
  Report Type: 
  Country: None (occurrence: None)
  Receive Date: 20051201
  Receipt Date: 20050929
  Transmission Date: 20060501
  Serious: No
  Sender: FDA-Public Use
  Company Number: 2005PV002706

PATIENT
  Sex: Male

DRUGS (1)
  1. BYETTA [Suspect]
     Indication: DIABETES MELLITUS
     Dosage: UNKNOWN; UNK; SC
     Route: 058
     Dates: start: 20050101

REACTIONS (1)
  - MALE SEXUAL DYSFUNCTION [None]
